FAERS Safety Report 4464850-8 (Version None)
Quarter: 2004Q4

REPORT INFORMATION
  Report Type: 
  Country: None (occurrence: None)
  Receive Date: 20041004
  Receipt Date: 20031117
  Transmission Date: 20050328
  Serious: No
  Sender: FDA-Public Use
  Company Number: 354391

PATIENT
  Age: 74 Year
  Sex: Female

DRUGS (7)
  1. COREG [Suspect]
     Route: 048
     Dates: start: 20030928
  2. KLYX [Concomitant]
  3. LASIX [Concomitant]
  4. VASOTEC [Concomitant]
  5. ECOTRIN [Concomitant]
  6. MAGNESIUM OXIDE [Concomitant]
  7. DIGOXIN [Concomitant]

REACTIONS (2)
  - FATIGUE [None]
  - HYPOTENSION [None]
